FAERS Safety Report 16383522 (Version 1)
Quarter: 2019Q2

REPORT INFORMATION
  Report Type: Spontaneous
  Country: US (occurrence: US)
  Receive Date: 20190603
  Receipt Date: 20190603
  Transmission Date: 20190711
  Serious: No
  Sender: FDA-Public Use
  Company Number: US-PFIZER INC-2019232475

PATIENT
  Age: 55 Year
  Sex: Female
  Weight: 58.97 kg

DRUGS (2)
  1. ADVIL LIQUI-GELS [Suspect]
     Active Substance: IBUPROFEN
     Indication: NECK PAIN
     Dosage: UNK
  2. ALEVE [Suspect]
     Active Substance: NAPROXEN SODIUM
     Indication: NECK PAIN
     Dosage: UNK

REACTIONS (4)
  - Asthma [Unknown]
  - Drug hypersensitivity [Unknown]
  - Urticaria [Unknown]
  - Limb injury [Unknown]
